FAERS Safety Report 18656428 (Version 1)
Quarter: 2020Q4

REPORT INFORMATION
  Report Type: Spontaneous
  Country: US (occurrence: US)
  Receive Date: 20201223
  Receipt Date: 20201223
  Transmission Date: 20210114
  Serious: Yes (Hospitalization, Other)
  Sender: FDA-Public Use
  Company Number: US-PURDUE-USA-2020-0179782

PATIENT
  Sex: Male

DRUGS (1)
  1. OXYCONTIN [Suspect]
     Active Substance: OXYCODONE HYDROCHLORIDE
     Indication: DEPRESSION SUICIDAL
     Route: 048

REACTIONS (12)
  - Hospitalisation [Unknown]
  - Bedridden [Unknown]
  - Amnesia [Unknown]
  - Seizure [Unknown]
  - Coma [Unknown]
  - Deep vein thrombosis [Unknown]
  - Pain [Unknown]
  - Anal incontinence [Unknown]
  - Drug withdrawal syndrome [Unknown]
  - Drug dependence [Unknown]
  - Pulmonary embolism [Unknown]
  - Unevaluable event [Unknown]
